FAERS Safety Report 17288113 (Version 3)
Quarter: 2020Q3

REPORT INFORMATION
  Report Type: Spontaneous
  Country: US (occurrence: US)
  Receive Date: 20200120
  Receipt Date: 20200825
  Transmission Date: 20201102
  Serious: Yes (Death, Hospitalization, Other)
  Sender: FDA-Public Use
  Company Number: US-TEVA-2020-US-1169773

PATIENT
  Sex: Male

DRUGS (1)
  1. AUSTEDO [Suspect]
     Active Substance: DEUTETRABENAZINE
     Indication: HUNTINGTON^S DISEASE
     Dosage: 30 MILLIGRAM DAILY; 2 TABLETS IN THE MORNING, 1 TABLET AT NOON AND 2 TABLETS IN THE EVENING

REACTIONS (3)
  - Dysphagia [Unknown]
  - Pneumonia [Fatal]
  - Cystitis [Unknown]
